FAERS Safety Report 17201980 (Version 1)
Quarter: 2019Q4

REPORT INFORMATION
  Report Type: Spontaneous
  Country: US (occurrence: US)
  Receive Date: 20191217
  Receipt Date: 20191217
  Transmission Date: 20200122
  Serious: No
  Sender: FDA-Public Use
  Company Number: None

PATIENT

DRUGS (2)
  1. HEPARIN 10,000 UNITS/10 ML [Suspect]
     Active Substance: HEPARIN SODIUM
  2. HEPARIN 10,000 UNITS/10 ML [Suspect]
     Active Substance: HEPARIN SODIUM
     Dosage: 10,000 UNITS/10 ML

REACTIONS (2)
  - Coagulation time shortened [None]
  - Therapeutic response unexpected [None]

NARRATIVE: CASE EVENT DATE: 20191025
